FAERS Safety Report 15771493 (Version 2)
Quarter: 2019Q1

REPORT INFORMATION
  Report Type: Spontaneous
  Country: US (occurrence: US)
  Receive Date: 20181228
  Receipt Date: 20190328
  Transmission Date: 20190417
  Serious: No
  Sender: FDA-Public Use
  Company Number: US-INDIVIOR LIMITED-INDV-116003-2018

PATIENT
  Sex: Male

DRUGS (1)
  1. SUBLOCADE [Suspect]
     Active Substance: BUPRENORPHINE
     Indication: PRODUCT USED FOR UNKNOWN INDICATION
     Dosage: 300MG,QMO
     Route: 058
     Dates: start: 20181121

REACTIONS (2)
  - Wound [Unknown]
  - Injection site erythema [Unknown]

NARRATIVE: CASE EVENT DATE: 20181122
